FAERS Safety Report 6426574-7 (Version None)
Quarter: 2009Q4

REPORT INFORMATION
  Report Type: 
  Country: None (occurrence: None)
  Receive Date: 20091104
  Receipt Date: 20091027
  Transmission Date: 20100525
  Serious: Yes (Hospitalization)
  Sender: FDA-Public Use
  Company Number: US-JNJFOC-20091007189

PATIENT
  Sex: Male
  Weight: 52.89 kg

DRUGS (7)
  1. INFLIXIMAB [Suspect]
     Indication: INFLAMMATORY BOWEL DISEASE
     Route: 042
     Dates: start: 20081222, end: 20090814
  2. 5-AMINOSALICYLIC ACID [Concomitant]
     Route: 048
  3. PREDNISONE TAB [Concomitant]
  4. LEVSIN [Concomitant]
  5. MULTIPLE VITAMIN [Concomitant]
  6. SLOW FE [Concomitant]
  7. OMEPRAZOLE [Concomitant]

REACTIONS (2)
  - CANDIDIASIS [None]
  - RETROPERITONEAL ABSCESS [None]
